FAERS Safety Report 10285823 (Version 1)
Quarter: 2014Q3

REPORT INFORMATION
  Report Type: Spontaneous
  Country: US (occurrence: None)
  Receive Date: 20140703
  Receipt Date: 20140703
  Transmission Date: 20150326
  Serious: No
  Sender: FDA-Public Use
  Company Number: None

PATIENT
  Age: 59 Year
  Sex: Female
  Weight: 81.65 kg

DRUGS (14)
  1. FISH OIL [Concomitant]
     Active Substance: FISH OIL
  2. GENERIC FOR SINGULAIR [Concomitant]
  3. VIT. D3 [Concomitant]
  4. CALCIUM [Concomitant]
     Active Substance: CALCIUM
  5. DEXILANT [Concomitant]
     Active Substance: DEXLANSOPRAZOLE
  6. AMOXICILLIN. [Suspect]
     Active Substance: AMOXICILLIN
     Indication: CYSTITIS
     Dosage: 250 MG, 15 CAP., 3X  BY MOUTH
     Route: 048
     Dates: start: 20140620, end: 20140623
  7. BENICAR [Concomitant]
     Active Substance: OLMESARTAN MEDOXOMIL
  8. GIMEPIRIDE [Concomitant]
  9. CHLORTRIMETON [Concomitant]
     Active Substance: CHLORPHENIRAMINE MALEATE
  10. CINNAMON CAP [Concomitant]
  11. PRAVISTATION [Concomitant]
  12. CRANBERRY FRUIT [Concomitant]
  13. ASPIRIN. [Concomitant]
     Active Substance: ASPIRIN
  14. KETOROLAC [Concomitant]
     Active Substance: KETOROLAC\KETOROLAC TROMETHAMINE

REACTIONS (4)
  - Breast pain [None]
  - No therapeutic response [None]
  - Chest pain [None]
  - Chest discomfort [None]

NARRATIVE: CASE EVENT DATE: 20140623
